FAERS Safety Report 7990786-1 (Version None)
Quarter: 2011Q4

REPORT INFORMATION
  Report Type: 
  Country: None (occurrence: None)
  Receive Date: 20111219
  Receipt Date: 20111214
  Transmission Date: 20120403
  Serious: No
  Sender: FDA-Public Use
  Company Number: US-BAYER-2011-121279

PATIENT

DRUGS (1)
  1. ALEVE (CAPLET) [Suspect]

REACTIONS (2)
  - HEADACHE [None]
  - SOMNOLENCE [None]
